FAERS Safety Report 9381296 (Version 3)
Quarter: 2014Q2

REPORT INFORMATION
  Report Type: Report from Study
  Country: DE (occurrence: DE)
  Receive Date: 20130703
  Receipt Date: 20140426
  Transmission Date: 20141212
  Serious: Yes (Hospitalization)
  Sender: FDA-Public Use
  Company Number: DE-009507513-1306DEU007650

PATIENT
  Age: 66 Year
  Sex: Female
  Weight: 73 kg

DRUGS (8)
  1. BOCEPREVIR [Suspect]
     Indication: CHRONIC HEPATITIS C
     Dosage: 2400 MG, DAILY
     Route: 048
     Dates: start: 20130307, end: 20130913
  2. COPEGUS [Suspect]
     Indication: CHRONIC HEPATITIS C
     Dosage: 800 MG, DAILY
     Route: 048
     Dates: start: 20130207, end: 20130417
  3. COPEGUS [Suspect]
     Dosage: 700 MG, DAILY
     Route: 048
     Dates: start: 20130418, end: 20130515
  4. COPEGUS [Suspect]
     Dosage: 600 MG, DAILY
     Route: 048
     Dates: start: 20130516, end: 20130529
  5. COPEGUS [Suspect]
     Dosage: 300 MG, DAILY
     Route: 048
     Dates: start: 20130530
  6. COPEGUS [Suspect]
     Dosage: 400MG DAILY
     Route: 048
     Dates: start: 20130627, end: 20130913
  7. PEGASYS [Suspect]
     Indication: CHRONIC HEPATITIS C
     Dosage: 180 MICROGRAM, QW
     Route: 048
     Dates: start: 20130207, end: 20130913
  8. L-THYROXIN [Concomitant]
     Indication: GOITRE
     Dosage: UNK

REACTIONS (1)
  - Haemolytic anaemia [Recovered/Resolved]
